FAERS Safety Report 4341766-9 (Version None)
Quarter: 2004Q2

REPORT INFORMATION
  Report Type: 
  Country: None (occurrence: None)
  Receive Date: 20040415
  Receipt Date: 20040405
  Transmission Date: 20050107
  Serious: Yes (Hospitalization, Disabling)
  Sender: FDA-Public Use
  Company Number: EWC040338626

PATIENT
  Age: 78 Year
  Sex: Female
  Weight: 68 kg

DRUGS (4)
  1. EVISTA [Suspect]
     Indication: OSTEOPOROSIS
     Dates: start: 20030304
  2. METFORMIN HCL [Concomitant]
  3. STARLIX [Concomitant]
  4. HUMULIN [Concomitant]

REACTIONS (3)
  - DEEP VEIN THROMBOSIS [None]
  - FALL [None]
  - HIP FRACTURE [None]
